FAERS Safety Report 4462643-9 (Version None)
Quarter: 2004Q3

REPORT INFORMATION
  Report Type: 
  Country: None (occurrence: None)
  Receive Date: 20040929
  Receipt Date: 20040920
  Transmission Date: 20050211
  Serious: Yes (Death)
  Sender: FDA-Public Use
  Company Number: A001-INS-3571

PATIENT
  Age: 73 Year
  Sex: Female

DRUGS (2)
  1. ARICEPT [Suspect]
     Indication: DEMENTIA ALZHEIMER'S TYPE
     Dosage: 10 MG , 1 IN 1 D, ORAL
     Route: 048
     Dates: start: 19960101, end: 19970101
  2. VITAMIN(VITAMINS) [Concomitant]

REACTIONS (4)
  - FALL [None]
  - HAEMORRHAGE [None]
  - HEAD INJURY [None]
  - SYNCOPE [None]
